FAERS Safety Report 15573337 (Version 1)
Quarter: 2018Q4

REPORT INFORMATION
  Report Type: Spontaneous
  Country: US (occurrence: US)
  Receive Date: 20181101
  Receipt Date: 20181101
  Transmission Date: 20190205
  Serious: Yes (Death)
  Sender: FDA-Public Use
  Company Number: US-ROCHE-2208882

PATIENT
  Age: 77 Year
  Sex: Male

DRUGS (10)
  1. FINASTERIDE. [Concomitant]
     Active Substance: FINASTERIDE
  2. LOSARTANA POTASSICA [Concomitant]
     Active Substance: LOSARTAN
  3. PANTOPRAZOL [Concomitant]
     Active Substance: PANTOPRAZOLE SODIUM
  4. ONDANSETRON [Concomitant]
     Active Substance: ONDANSETRON
  5. PROAIR HFA [Concomitant]
     Active Substance: ALBUTEROL SULFATE
  6. VENTOLIN [Concomitant]
     Active Substance: ALBUTEROL SULFATE
  7. NITROGLYCERIN. [Concomitant]
     Active Substance: NITROGLYCERIN
  8. ESBRIET [Suspect]
     Active Substance: PIRFENIDONE
     Indication: IDIOPATHIC PULMONARY FIBROSIS
     Route: 048
     Dates: start: 20160824, end: 20181023
  9. ELIQUIS [Concomitant]
     Active Substance: APIXABAN
  10. SOTALOL. [Concomitant]
     Active Substance: SOTALOL

REACTIONS (1)
  - Death [Fatal]

NARRATIVE: CASE EVENT DATE: 20181023
